FAERS Safety Report 24691901 (Version 8)
Quarter: 2025Q2

REPORT INFORMATION
  Report Type: Spontaneous
  Country: GR (occurrence: GR)
  Receive Date: 20241203
  Receipt Date: 20250428
  Transmission Date: 20250716
  Serious: No
  Sender: PFIZER
  Company Number: GR-PFIZER INC-PV202400154054

PATIENT
  Age: 12 Year
  Sex: Female
  Weight: 30 kg

DRUGS (2)
  1. GENOTROPIN [Suspect]
     Active Substance: SOMATROPIN
     Indication: Growth hormone deficiency
     Route: 058
     Dates: start: 202211, end: 20241121
  2. GENOTROPIN [Suspect]
     Active Substance: SOMATROPIN
     Route: 058
     Dates: start: 202211, end: 20241121

REACTIONS (2)
  - Drug dose omission by device [Unknown]
  - Device physical property issue [Unknown]

NARRATIVE: CASE EVENT DATE: 20241121
